FAERS Safety Report 25849833 (Version 3)
Quarter: 2025Q4

REPORT INFORMATION
  Report Type: Spontaneous
  Country: US (occurrence: US)
  Receive Date: 20250926
  Receipt Date: 20251015
  Transmission Date: 20260118
  Serious: Yes (Life-Threatening, Hospitalization, Disabling, Other)
  Sender: AUROBINDO
  Company Number: US-MLMSERVICE-20250908-PI640046-00295-1

PATIENT
  Age: 75 Year
  Sex: Female

DRUGS (2)
  1. SERTRALINE [Suspect]
     Active Substance: SERTRALINE HYDROCHLORIDE
     Indication: Product used for unknown indication
     Dosage: 150 MILLIGRAM, ONCE A DAY (150 MG DAILY FOR 20 YEARS)
     Route: 065
  2. ATORVASTATIN [Suspect]
     Active Substance: ATORVASTATIN
     Indication: Product used for unknown indication
     Dosage: 40 MILLIGRAM (DISCONTINUED 1 YEAR PRIOR)
     Route: 065

REACTIONS (2)
  - Multiple acyl-coenzyme A dehydrogenase deficiency [Recovering/Resolving]
  - Drug ineffective [Unknown]
